FAERS Safety Report 17958547 (Version 4)
Quarter: 2020Q3

REPORT INFORMATION
  Report Type: Report from Study
  Country: None (occurrence: US)
  Receive Date: 20200630
  Receipt Date: 20200905
  Transmission Date: 20201103
  Serious: Yes (Life-Threatening, Hospitalization, Other)
  Sender: FDA-Public Use
  Company Number: US-ABBVIE-20K-163-3458262-00

PATIENT
  Age: 20 Year
  Sex: Male
  Weight: 60.3 kg

DRUGS (14)
  1. HUMIRA [Suspect]
     Active Substance: ADALIMUMAB
     Indication: CROHN^S DISEASE
     Route: 058
     Dates: start: 20170222, end: 20180102
  2. NIACINAMIDE [Concomitant]
     Active Substance: NIACINAMIDE
     Indication: PHOTOSENSITIVITY REACTION
     Route: 048
     Dates: start: 2016
  3. TAZORAC [Concomitant]
     Active Substance: TAZAROTENE
     Indication: ACNE
     Route: 061
     Dates: start: 20180402
  4. METHOTREXATE. [Concomitant]
     Active Substance: METHOTREXATE
     Indication: CROHN^S DISEASE
     Route: 058
     Dates: start: 20180802
  5. VITAMIN D2 [Concomitant]
     Active Substance: ERGOCALCIFEROL
     Indication: VITAMIN SUPPLEMENTATION
     Route: 048
     Dates: start: 2014, end: 20180423
  6. CLINDAMYCIN. [Concomitant]
     Active Substance: CLINDAMYCIN
     Indication: ACNE
     Route: 061
     Dates: start: 20180402
  7. CALCIUM [Concomitant]
     Active Substance: CALCIUM
     Indication: MINERAL SUPPLEMENTATION
     Route: 048
     Dates: start: 2018, end: 20200621
  8. FOLIC ACID. [Concomitant]
     Active Substance: FOLIC ACID
     Indication: VITAMIN SUPPLEMENTATION
     Route: 048
     Dates: start: 20180312, end: 20200621
  9. BENZOYL PEROXIDE. [Concomitant]
     Active Substance: BENZOYL PEROXIDE
     Indication: ACNE
     Route: 061
     Dates: start: 20180402
  10. VITAMIN D2 [Concomitant]
     Active Substance: ERGOCALCIFEROL
     Route: 048
     Dates: start: 20180423
  11. HYDROCORTISONE. [Concomitant]
     Active Substance: HYDROCORTISONE
     Indication: SEBORRHOEIC DERMATITIS
     Route: 061
     Dates: start: 20180402
  12. LIALDA [Concomitant]
     Active Substance: MESALAMINE
     Route: 048
     Dates: start: 20190204, end: 20200622
  13. HUMIRA [Suspect]
     Active Substance: ADALIMUMAB
     Route: 058
     Dates: start: 20180103
  14. LIALDA [Concomitant]
     Active Substance: MESALAMINE
     Indication: CROHN^S DISEASE
     Route: 048
     Dates: start: 2015, end: 20190204

REACTIONS (1)
  - Lower gastrointestinal haemorrhage [Not Recovered/Not Resolved]

NARRATIVE: CASE EVENT DATE: 20200621
